FAERS Safety Report 10008521 (Version 1)
Quarter: 2014Q1

REPORT INFORMATION
  Report Type: Spontaneous
  Country: DE (occurrence: DE)
  Receive Date: 20140313
  Receipt Date: 20140313
  Transmission Date: 20141002
  Serious: Yes (Hospitalization, Other)
  Sender: FDA-Public Use
  Company Number: PHHY2014DE029950

PATIENT
  Sex: Male

DRUGS (4)
  1. OXCARBAZEPINE [Suspect]
     Indication: GRAND MAL CONVULSION
     Dosage: UNK UKN, UNK
  2. TOPIRAMATE [Suspect]
     Indication: GRAND MAL CONVULSION
     Dosage: UNK UKN, UNK
  3. LEVETIRACETAM [Suspect]
     Indication: GRAND MAL CONVULSION
     Dosage: UNK UKN, UNK
  4. LAMOTRIGINE [Suspect]
     Indication: GRAND MAL CONVULSION
     Dosage: UNK UKN, UNK

REACTIONS (22)
  - Suicidal ideation [Unknown]
  - Depersonalisation [Unknown]
  - Tremor [Unknown]
  - Heart rate increased [Unknown]
  - Mania [Unknown]
  - Aggression [Unknown]
  - Performance status decreased [Unknown]
  - Abnormal behaviour [Unknown]
  - Mental disorder [Unknown]
  - Self esteem decreased [Unknown]
  - Emotional poverty [Unknown]
  - Social avoidant behaviour [Unknown]
  - Euphoric mood [Unknown]
  - Depressed mood [Unknown]
  - Hypokinesia [Unknown]
  - Aphasia [Unknown]
  - Anxiety [Unknown]
  - Partial seizures [Unknown]
  - Apathy [Unknown]
  - Disturbance in attention [Unknown]
  - Vertigo [Unknown]
  - Drug effect incomplete [Unknown]
